FAERS Safety Report 16880626 (Version 2)
Quarter: 2019Q4

REPORT INFORMATION
  Report Type: Spontaneous
  Country: BR (occurrence: BR)
  Receive Date: 20191003
  Receipt Date: 20191003
  Transmission Date: 20200122
  Serious: Yes (Other)
  Sender: FDA-Public Use
  Company Number: BR-PFIZER INC-2019414909

PATIENT
  Age: 25 Year
  Sex: Female

DRUGS (15)
  1. SAFFLOWER OIL [Concomitant]
     Active Substance: SAFFLOWER OIL
     Dosage: UNK
  2. PHASEOLUS VULGARIS [Concomitant]
     Dosage: UNK
  3. HORSETAIL [Concomitant]
     Active Substance: HERBALS
     Dosage: UNK
  4. SENE [Concomitant]
     Dosage: UNK
  5. GINGER CITRONELLA [Concomitant]
     Dosage: UNK
  6. YERBA MATE [ILEX PARAGUARIENSIS LEAF] [Concomitant]
     Dosage: UNK
  7. SERTRALINE HCL [Suspect]
     Active Substance: SERTRALINE HYDROCHLORIDE
     Dosage: UNK
  8. ORLISTAT. [Concomitant]
     Active Substance: ORLISTAT
     Dosage: UNK
  9. KETOPROFEN. [Concomitant]
     Active Substance: KETOPROFEN
     Indication: BACK PAIN
     Dosage: UNK
  10. BROCCOLI EXTRACT [Concomitant]
  11. GARCINIA CAMBOGIA COMP [Concomitant]
     Active Substance: HERBALS\GARCINIA CAMBOGIA FRUIT
     Dosage: UNK
  12. BEARBERRY EXTRACT [Concomitant]
     Active Substance: ARCTOSTAPHYLOS UVA-URSI LEAF\HOMEOPATHICS
     Dosage: UNK
  13. AMORPHOPHALLUS KONJAC [Concomitant]
     Dosage: UNK
  14. BUPROPION. [Concomitant]
     Active Substance: BUPROPION
     Dosage: UNK
  15. METFORMIN [Concomitant]
     Active Substance: METFORMIN HYDROCHLORIDE
     Dosage: UNK

REACTIONS (1)
  - Vanishing bile duct syndrome [Recovering/Resolving]
